FAERS Safety Report 25135039 (Version 5)
Quarter: 2025Q2

REPORT INFORMATION
  Report Type: Spontaneous
  Country: US (occurrence: US)
  Receive Date: 20250328
  Receipt Date: 20250627
  Transmission Date: 20250716
  Serious: No
  Sender: PFIZER
  Company Number: US-PFIZER INC-PV202500036780

PATIENT
  Age: 63 Year
  Sex: Female

DRUGS (3)
  1. TUKYSA [Suspect]
     Active Substance: TUCATINIB
     Dosage: 150 MG, TWO TABLETS TWICE A DAY
  2. FLONASE [Concomitant]
     Active Substance: FLUTICASONE PROPIONATE
  3. XELODA [Concomitant]
     Active Substance: CAPECITABINE

REACTIONS (6)
  - Blood test abnormal [Unknown]
  - Hepatic function abnormal [Unknown]
  - Nausea [Unknown]
  - Cough [Not Recovered/Not Resolved]
  - Upper-airway cough syndrome [Unknown]
  - Diarrhoea [Unknown]
